FAERS Safety Report 24730039 (Version 2)
Quarter: 2024Q4

REPORT INFORMATION
  Report Type: Report from Study
  Country: AU (occurrence: AU)
  Receive Date: 20241213
  Receipt Date: 20241220
  Transmission Date: 20250115
  Serious: Yes (Hospitalization, Other)
  Sender: TAKEDA
  Company Number: AU-TAKEDA-2024TUS048770

PATIENT
  Age: 75 Year
  Sex: Male

DRUGS (12)
  1. TEDUGLUTIDE [Suspect]
     Active Substance: TEDUGLUTIDE
     Indication: Short-bowel syndrome
     Dosage: 3.8 MILLIGRAM, QD
     Dates: start: 20210921
  2. TEDUGLUTIDE [Suspect]
     Active Substance: TEDUGLUTIDE
  3. TEDUGLUTIDE [Suspect]
     Active Substance: TEDUGLUTIDE
  4. TEDUGLUTIDE [Suspect]
     Active Substance: TEDUGLUTIDE
  5. ENOXAPARIN SODIUM [Concomitant]
     Active Substance: ENOXAPARIN SODIUM
     Indication: Anticoagulant therapy
     Dosage: 105 MILLIGRAM, QD
     Dates: start: 20230217, end: 20240429
  6. IRON [Concomitant]
     Active Substance: IRON
     Indication: Mineral supplementation
     Dosage: 1 GRAM, SINGLE
     Dates: start: 20230303, end: 20230303
  7. IRON [Concomitant]
     Active Substance: IRON
     Dosage: 1 GRAM, SINGLE
     Dates: start: 20240430, end: 20240430
  8. CHOLECALCIFEROL [Concomitant]
     Active Substance: CHOLECALCIFEROL
     Indication: Supplementation therapy
     Dosage: 5000 INTERNATIONAL UNIT, QD
     Dates: start: 20231220
  9. ALBUTEROL [Concomitant]
     Active Substance: ALBUTEROL
     Indication: Dyspnoea
     Dosage: 100 MICROGRAM
  10. BETAMETHASONE [Concomitant]
     Active Substance: BETAMETHASONE
     Indication: Rash
     Route: 061
  11. LORATADINE [Concomitant]
     Active Substance: LORATADINE
     Dosage: 10 MILLIGRAM, QD
  12. METRONIDAZOLE [Concomitant]
     Active Substance: METRONIDAZOLE
     Dosage: 400 MILLIGRAM, BID
     Dates: start: 20240627

REACTIONS (6)
  - Arthralgia [Recovered/Resolved]
  - Polymyalgia rheumatica [Recovered/Resolved]
  - Ileostomy [Recovered/Resolved]
  - Muscle spasms [Not Recovered/Not Resolved]
  - Pleuritic pain [Recovered/Resolved]
  - Bile acid malabsorption [Not Recovered/Not Resolved]

NARRATIVE: CASE EVENT DATE: 20231201
